FAERS Safety Report 15811413 (Version 1)
Quarter: 2019Q1

REPORT INFORMATION
  Report Type: Spontaneous
  Country: IT (occurrence: IT)
  Receive Date: 20190111
  Receipt Date: 20190111
  Transmission Date: 20190417
  Serious: Yes (Hospitalization)
  Sender: FDA-Public Use
  Company Number: IT-ASTRAZENECA-2019SE03132

PATIENT
  Age: 83 Year
  Sex: Female

DRUGS (9)
  1. AZITROMICINA DOC [Suspect]
     Active Substance: AZITHROMYCIN
     Indication: PYREXIA
     Route: 048
     Dates: start: 20180922, end: 20181002
  2. GIANT [Concomitant]
     Active Substance: AMLODIPINE BESYLATE\OLMESARTAN MEDOXOMIL
     Dosage: 40 MG/5 MG
  3. TALOFEN [Concomitant]
     Active Substance: PROMAZINE HYDROCHLORIDE
     Dosage: 4 G/100 ML
  4. MIRAPEXIN [Concomitant]
     Active Substance: PRAMIPEXOLE
  5. ATENOLOL. [Concomitant]
     Active Substance: ATENOLOL
  6. SEEBRI [Concomitant]
     Active Substance: GLYCOPYRROLATE
  7. CRESTOR [Suspect]
     Active Substance: ROSUVASTATIN CALCIUM
     Indication: HYPERCHOLESTEROLAEMIA
     Route: 048
     Dates: start: 20080101, end: 20181005
  8. CARDIRENE [Concomitant]
     Active Substance: ASPIRIN DL-LYSINE
     Dosage: 160 MG
  9. DIBASE [Concomitant]
     Active Substance: CHOLECALCIFEROL
     Dosage: 25.000 U.I./2,5 ML

REACTIONS (3)
  - Chills [Recovering/Resolving]
  - Dyskinesia [Recovering/Resolving]
  - Pyrexia [Recovering/Resolving]

NARRATIVE: CASE EVENT DATE: 20181004
